FAERS Safety Report 19872052 (Version 4)
Quarter: 2021Q4

REPORT INFORMATION
  Report Type: Report from Study
  Country: EG (occurrence: EG)
  Receive Date: 20210923
  Receipt Date: 20211028
  Transmission Date: 20220303
  Serious: Yes (Other)
  Sender: FDA-Public Use
  Company Number: EG-BAYER-2021-171353

PATIENT

DRUGS (1)
  1. EYLEA [Suspect]
     Active Substance: AFLIBERCEPT
     Indication: Macular oedema
     Dosage: 1 DF, ONCE TO LEFT EYE (TOTAL OF ONE DOSE)
     Route: 031
     Dates: start: 20210215, end: 20210215

REACTIONS (3)
  - Blindness unilateral [Not Recovered/Not Resolved]
  - Optic nerve disorder [Not Recovered/Not Resolved]
  - Cranial nerve infection [Not Recovered/Not Resolved]

NARRATIVE: CASE EVENT DATE: 20210401
